FAERS Safety Report 10447922 (Version 4)
Quarter: 2014Q4

REPORT INFORMATION
  Report Type: Spontaneous
  Country: JP (occurrence: JP)
  Receive Date: 20140911
  Receipt Date: 20141014
  Transmission Date: 20150528
  Serious: Yes (Other)
  Sender: FDA-Public Use
  Company Number: JP-ELI_LILLY_AND_COMPANY-JP201406008481

PATIENT
  Sex: Female

DRUGS (8)
  1. PREDNISOLONE. [Concomitant]
     Active Substance: PREDNISOLONE
     Indication: IMMUNOSUPPRESSION
     Dosage: 5 MG, QD
     Route: 065
     Dates: start: 2011
  2. HUMALOG [Suspect]
     Active Substance: INSULIN LISPRO
     Dosage: DURING PREGNANCY, BASAL 23 IU AND BOLUS 8 IU
     Route: 058
  3. LEVEMIR [Suspect]
     Active Substance: INSULIN DETEMIR
     Indication: TYPE 1 DIABETES MELLITUS
     Dosage: 25 IU, QD
     Route: 065
  4. PROGRAF [Concomitant]
     Active Substance: TACROLIMUS\TACROLIMUS ANHYDROUS
     Indication: IMMUNOSUPPRESSION
     Dosage: 2 MG, QD
     Route: 048
     Dates: start: 2011
  5. HUMALOG [Suspect]
     Active Substance: INSULIN LISPRO
     Indication: TYPE 1 DIABETES MELLITUS
     Dosage: PRIOR TO PREGNANCY, BASAL 17 IU AND BOLUS 8 IU
     Route: 058
     Dates: start: 201211
  6. HUMALOG [Suspect]
     Active Substance: INSULIN LISPRO
     Dosage: AFTER DELIVERY, BASAL 12 IU AND BOLUS 8 IU
     Route: 058
  7. CLOMIFENE [Concomitant]
     Indication: PREGNANCY
     Dosage: UNK
     Route: 048
  8. PROGRAF [Concomitant]
     Active Substance: TACROLIMUS\TACROLIMUS ANHYDROUS
     Indication: IMMUNOSUPPRESSION
     Dosage: 0.4 MG, QD
     Route: 048

REACTIONS (3)
  - Maternal exposure before pregnancy [Unknown]
  - Placental infarction [Unknown]
  - Maternal exposure during pregnancy [Unknown]
